FAERS Safety Report 21757919 (Version 1)
Quarter: 2022Q4

REPORT INFORMATION
  Report Type: Other
  Country: US (occurrence: None)
  Receive Date: 20221221
  Receipt Date: 20221221
  Transmission Date: 20230113
  Serious: Yes (Other)
  Sender: FDA-Public Use
  Company Number: US-ROCHE-3207640

PATIENT
  Age: 34 Year
  Sex: Female

DRUGS (18)
  1. ALTEPLASE [Suspect]
     Active Substance: ALTEPLASE
     Indication: Pulmonary embolism
     Route: 042
  2. ATROPINE [Concomitant]
     Active Substance: ATROPINE
     Indication: Pulseless electrical activity
     Route: 042
  3. ATROPINE [Concomitant]
     Active Substance: ATROPINE
     Dosage: AFTER SECOND EPISODE OF PEA ATROPINE 1 MG IV WAS ADMINISTERED
     Route: 042
  4. EPINEPHRINE [Concomitant]
     Active Substance: EPINEPHRINE
     Indication: Pulseless electrical activity
     Route: 042
  5. EPINEPHRINE [Concomitant]
     Active Substance: EPINEPHRINE
     Dosage: AFTER SECOND EPISODE OF PEA EPINEPHRINE 1 MG IV WAS ADMINISTERED
     Route: 042
  6. EPINEPHRINE [Concomitant]
     Active Substance: EPINEPHRINE
     Dosage: AFTER THIRD EPISODE OF PEA EPINEPHRINE 1 MG IV WAS ADMINISTERED
     Route: 042
  7. EPINEPHRINE [Concomitant]
     Active Substance: EPINEPHRINE
     Dosage: AFTER FOURTH EPISODE OF PEA EPINEPHRINE 1 MG IV WAS ADMINISTERED
     Route: 042
  8. MILRINONE [Concomitant]
     Active Substance: MILRINONE
     Indication: Pulseless electrical activity
     Dosage: 20 MG IN DEXTROSE 5% IN WATER [D5W] 100 ML INFUSION
  9. MILRINONE [Concomitant]
     Active Substance: MILRINONE
     Dosage: ON POSTOPERATIVE DAY 1, PATIENT WAS ON MILRINONE FOR IONOTROPIC SUPPORT.
  10. DEXTROSE [Concomitant]
     Active Substance: DEXTROSE
  11. ONDANSETRON [Concomitant]
     Active Substance: ONDANSETRON
     Indication: Pulseless electrical activity
     Route: 042
  12. KETOROLAC [Concomitant]
     Active Substance: KETOROLAC TROMETHAMINE
     Indication: Pulseless electrical activity
     Route: 042
  13. DOBUTAMINE [Concomitant]
     Active Substance: DOBUTAMINE HYDROCHLORIDE
     Indication: Pulseless electrical activity
     Dosage: DOBUTAMINE (1,000 MG IN D5W 250 ML INFUSION) WAS STARTED AFTER THIRD EPISODE OF PEA WAS NOTED
  14. NITRIC OXIDE [Concomitant]
     Active Substance: NITRIC OXIDE
  15. PROPOFOL [Concomitant]
     Active Substance: PROPOFOL
     Indication: Sedation
     Dosage: 10 MG/ML
  16. NOREPINEPHRINE [Concomitant]
     Active Substance: NOREPINEPHRINE
     Dosage: 32 MG IN D5W 250 ML INFUSION
  17. VASOPRESSIN [Concomitant]
     Active Substance: VASOPRESSIN
     Dosage: 2 UNITS/ML IN D5W 100 ML INFUSION
  18. FENTANYL [Concomitant]
     Active Substance: FENTANYL
     Indication: Sedation

REACTIONS (1)
  - Intra-abdominal haemorrhage [Unknown]
